FAERS Safety Report 6863211-1 (Version None)
Quarter: 2010Q3

REPORT INFORMATION
  Report Type: 
  Country: None (occurrence: None)
  Receive Date: 20100706
  Receipt Date: 20100521
  Transmission Date: 20110219
  Serious: No
  Sender: FDA-Public Use
  Company Number: None

PATIENT
  Age: 42 Year
  Sex: Female
  Weight: 91.6266 kg

DRUGS (1)
  1. ALLOMEM [Suspect]
     Indication: TISSUE ADHESION PROPHYLAXIS
     Dosage: 033
     Dates: start: 20100520

REACTIONS (2)
  - SURGICAL PROCEDURE REPEATED [None]
  - WRONG TECHNIQUE IN DRUG USAGE PROCESS [None]
